FAERS Safety Report 4883638-7 (Version None)
Quarter: 2006Q1

REPORT INFORMATION
  Report Type: 
  Country: None (occurrence: None)
  Receive Date: 20060113
  Receipt Date: 20060103
  Transmission Date: 20060701
  Serious: Yes (Death)
  Sender: FDA-Public Use
  Company Number: US200601000381

PATIENT
  Age: 76 Year
  Sex: Female

DRUGS (3)
  1. ZYPREXA [Suspect]
     Indication: BIPOLAR DISORDER
     Dosage: 40 MG, ORAL
     Route: 048
  2. SEROQUEL [Concomitant]
  3. TRILEPTAL [Concomitant]

REACTIONS (1)
  - PRESCRIBED OVERDOSE [None]
